FAERS Safety Report 23565317 (Version 2)
Quarter: 2024Q1

REPORT INFORMATION
  Report Type: Spontaneous
  Country: JP (occurrence: JP)
  Receive Date: 20240226
  Receipt Date: 20240228
  Transmission Date: 20240410
  Serious: Yes (Life-Threatening, Hospitalization, Other)
  Sender: FDA-Public Use
  Company Number: JP-MLMSERVICE-20240214-4832178-2

PATIENT
  Age: 58 Year
  Sex: Female

DRUGS (20)
  1. EPIRUBICIN HYDROCHLORIDE [Suspect]
     Active Substance: EPIRUBICIN HYDROCHLORIDE
     Indication: Disease progression
     Dosage: 750 MG/M2, CYCLIC (FEC 75)
  2. EPIRUBICIN HYDROCHLORIDE [Suspect]
     Active Substance: EPIRUBICIN HYDROCHLORIDE
     Indication: Metastases to lung
  3. EPIRUBICIN HYDROCHLORIDE [Suspect]
     Active Substance: EPIRUBICIN HYDROCHLORIDE
     Indication: Metastases to bone
  4. EPIRUBICIN HYDROCHLORIDE [Suspect]
     Active Substance: EPIRUBICIN HYDROCHLORIDE
     Indication: Breast cancer stage II
  5. FLUOROURACIL [Concomitant]
     Active Substance: FLUOROURACIL
     Indication: Disease progression
     Dosage: UNK, (FEC 75)
  6. FLUOROURACIL [Concomitant]
     Active Substance: FLUOROURACIL
     Indication: Metastases to bone
  7. FLUOROURACIL [Concomitant]
     Active Substance: FLUOROURACIL
     Indication: Metastases to lung
  8. FLUOROURACIL [Concomitant]
     Active Substance: FLUOROURACIL
     Indication: Breast cancer stage II
  9. CYCLOPHOSPHAMIDE [Concomitant]
     Active Substance: CYCLOPHOSPHAMIDE
     Indication: Disease progression
     Dosage: UNK, (FEC 75)
  10. CYCLOPHOSPHAMIDE [Concomitant]
     Active Substance: CYCLOPHOSPHAMIDE
     Indication: Metastases to lung
  11. CYCLOPHOSPHAMIDE [Concomitant]
     Active Substance: CYCLOPHOSPHAMIDE
     Indication: Breast cancer stage II
  12. CYCLOPHOSPHAMIDE [Concomitant]
     Active Substance: CYCLOPHOSPHAMIDE
     Indication: Metastases to bone
  13. PACLITAXEL [Concomitant]
     Active Substance: PACLITAXEL
     Indication: Metastases to bone
  14. PACLITAXEL [Concomitant]
     Active Substance: PACLITAXEL
     Indication: Metastases to lung
  15. PACLITAXEL [Concomitant]
     Active Substance: PACLITAXEL
     Indication: Disease progression
  16. PACLITAXEL [Concomitant]
     Active Substance: PACLITAXEL
     Indication: Breast cancer stage II
  17. BEVACIZUMAB [Concomitant]
     Active Substance: BEVACIZUMAB
     Indication: Breast cancer stage II
  18. BEVACIZUMAB [Concomitant]
     Active Substance: BEVACIZUMAB
     Indication: Metastases to bone
  19. BEVACIZUMAB [Concomitant]
     Active Substance: BEVACIZUMAB
     Indication: Disease progression
  20. BEVACIZUMAB [Concomitant]
     Active Substance: BEVACIZUMAB
     Indication: Metastases to lung

REACTIONS (1)
  - Cardiac failure [Not Recovered/Not Resolved]
